FAERS Safety Report 10172864 (Version 2)
Quarter: 2014Q2

REPORT INFORMATION
  Report Type: Spontaneous
  Country: US (occurrence: US)
  Receive Date: 20140515
  Receipt Date: 20140603
  Transmission Date: 20141212
  Serious: Yes (Other)
  Sender: FDA-Public Use
  Company Number: US-MERCK-1405USA003511

PATIENT
  Sex: 0

DRUGS (3)
  1. REBETOL [Suspect]
     Indication: RESPIRATORY SYNCYTIAL VIRUS INFECTION
     Dosage: 600-800 MG TWICE DAILY, FOR 5- 10 DAYS
     Route: 048
  2. REBETOL [Suspect]
     Dosage: 400 MG, BID
     Route: 048
  3. GLOBULIN, IMMUNE [Suspect]
     Indication: RESPIRATORY SYNCYTIAL VIRUS INFECTION
     Dosage: 500 MG/KG, QOD
     Route: 042

REACTIONS (1)
  - Renal failure [Recovered/Resolved]
